FAERS Safety Report 4635743-8 (Version None)
Quarter: 2005Q2

REPORT INFORMATION
  Report Type: 
  Country: None (occurrence: None)
  Receive Date: 20050414
  Receipt Date: 20050330
  Transmission Date: 20051028
  Serious: Yes (Hospitalization)
  Sender: FDA-Public Use
  Company Number: SUSI-2004-00347

PATIENT
  Age: 48 Year
  Sex: Male

DRUGS (1)
  1. PENTASA [Suspect]
     Indication: COLITIS ULCERATIVE
     Dosage: 1 G, RECTAL
     Route: 054
     Dates: start: 19920101, end: 20040401

REACTIONS (7)
  - ALOPECIA AREATA [None]
  - ECZEMA [None]
  - EOSINOPHILIA [None]
  - INSOMNIA [None]
  - PRURITUS [None]
  - RHINITIS [None]
  - TOXOCARIASIS [None]
